FAERS Safety Report 5594062-6 (Version None)
Quarter: 2008Q1

REPORT INFORMATION
  Report Type: 
  Country: None (occurrence: None)
  Receive Date: 20080116
  Receipt Date: 20080109
  Transmission Date: 20080703
  Serious: Yes (Life-Threatening, Hospitalization)
  Sender: FDA-Public Use
  Company Number: IT-PFIZER INC-2004218742IT

PATIENT
  Sex: Male
  Weight: 72.1 kg

DRUGS (1)
  1. SU-011,248 [Suspect]
     Indication: GASTROINTESTINAL STROMAL TUMOUR
     Dosage: DAILY DOSE:50MG
     Route: 048
     Dates: start: 20040227, end: 20040725

REACTIONS (3)
  - ANAEMIA [None]
  - INTESTINAL OBSTRUCTION [None]
  - MELAENA [None]
